FAERS Safety Report 6109192-X (Version None)
Quarter: 2009Q1

REPORT INFORMATION
  Report Type: 
  Country: None (occurrence: None)
  Receive Date: 20090306
  Receipt Date: 20090306
  Transmission Date: 20090719
  Serious: Yes (Other)
  Sender: FDA-Public Use
  Company Number: None

PATIENT
  Sex: Male

DRUGS (1)
  1. FENTANYL-25 [Suspect]
     Indication: PAIN
     Dosage: 1 EVERY 72 HOURS TRANSDERMAL
     Route: 062

REACTIONS (2)
  - DYSPNOEA [None]
  - MUSCULAR WEAKNESS [None]
